FAERS Safety Report 17997852 (Version 1)
Quarter: 2020Q3

REPORT INFORMATION
  Report Type: Spontaneous
  Country: US (occurrence: US)
  Receive Date: 20200709
  Receipt Date: 20200709
  Transmission Date: 20201103
  Serious: Yes (Death, Hospitalization)
  Sender: FDA-Public Use
  Company Number: US-PACIRA-202000283

PATIENT
  Age: 36 Year
  Sex: Female

DRUGS (4)
  1. NORMAL SALINE [Suspect]
     Active Substance: SODIUM CHLORIDE
     Indication: LAPAROTOMY
     Dosage: 200CC WITH 266MG OF EXPAREL AND 150ML OF 0.25% BUPIVACAINE
     Route: 065
     Dates: start: 20200628, end: 20200628
  2. EXPAREL [Suspect]
     Active Substance: BUPIVACAINE
     Indication: LAPAROTOMY
     Dosage: 266MG OF EXPAREL WITH 150ML OF 0.25% BUPIVACAINE AND 200CC OF NORMAL SALINE
     Route: 065
     Dates: start: 20200628, end: 20200628
  3. BUPIVACAINE. [Suspect]
     Active Substance: BUPIVACAINE
     Indication: LAPAROTOMY
     Dosage: 150ML OF 0.25% BUPIVACAINE WITH 266MG OF EXPAREL AND 200CC OF NORMAL SALINE
     Route: 065
     Dates: start: 20200628, end: 20200628
  4. LIDOCAINE WITH EPI [Suspect]
     Active Substance: EPINEPHRINE\LIDOCAINE
     Indication: EXPLORATIVE LAPAROTOMY
     Dosage: NOT REPORTED, 2 HOURS BEFORE THE TAP BLOCK
     Route: 065
     Dates: start: 20200628, end: 20200628

REACTIONS (4)
  - Pain in extremity [Not Recovered/Not Resolved]
  - Back pain [Not Recovered/Not Resolved]
  - Pulseless electrical activity [Fatal]
  - Mitochondrial myopathy [Fatal]
